FAERS Safety Report 13848961 (Version 1)
Quarter: 2017Q3

REPORT INFORMATION
  Report Type: Spontaneous
  Country: US (occurrence: US)
  Receive Date: 20170809
  Receipt Date: 20170809
  Transmission Date: 20171127
  Serious: Yes (Other)
  Sender: FDA-Public Use
  Company Number: US-AMGEN-USASP2017116951

PATIENT
  Sex: Male

DRUGS (9)
  1. RITUXAN [Concomitant]
     Active Substance: RITUXIMAB
     Indication: RHEUMATOID ARTHRITIS
     Dosage: UNK
  2. REMICADE [Concomitant]
     Active Substance: INFLIXIMAB
     Indication: RHEUMATOID ARTHRITIS
     Dosage: UNK
  3. ENBREL [Suspect]
     Active Substance: ETANERCEPT
     Indication: RHEUMATOID ARTHRITIS
     Dosage: UNK
     Route: 065
  4. METHOTREXATE. [Concomitant]
     Active Substance: METHOTREXATE
     Indication: RHEUMATOID ARTHRITIS
     Dosage: UNK
  5. XELJANZ [Concomitant]
     Active Substance: TOFACITINIB CITRATE
     Indication: PRODUCT USED FOR UNKNOWN INDICATION
     Dosage: 5 MG, BID
     Route: 048
  6. HUMIRA [Concomitant]
     Active Substance: ADALIMUMAB
     Indication: RHEUMATOID ARTHRITIS
     Dosage: UNK
  7. ACTEMRA [Concomitant]
     Active Substance: TOCILIZUMAB
     Indication: RHEUMATOID ARTHRITIS
     Dosage: UNK
  8. SIMPONI [Concomitant]
     Active Substance: GOLIMUMAB
     Indication: RHEUMATOID ARTHRITIS
     Dosage: UNK
  9. ORENCIA [Concomitant]
     Active Substance: ABATACEPT
     Indication: RHEUMATOID ARTHRITIS
     Dosage: UNK

REACTIONS (29)
  - Dupuytren^s contracture [Unknown]
  - Road traffic accident [Unknown]
  - Arthralgia [Unknown]
  - Myalgia [Unknown]
  - Wheezing [Unknown]
  - Night sweats [Unknown]
  - Abdominal pain [Unknown]
  - Back pain [Unknown]
  - Muscle spasms [Unknown]
  - Muscular weakness [Unknown]
  - Fatigue [Unknown]
  - Swelling [Unknown]
  - Depression [Unknown]
  - Insomnia [Unknown]
  - Treatment failure [Unknown]
  - Dysuria [Unknown]
  - Sexual dysfunction [Unknown]
  - Headache [Unknown]
  - Nodule [Unknown]
  - Neck pain [Unknown]
  - Hernia [Unknown]
  - Rash [Unknown]
  - Dyspepsia [Unknown]
  - Nocturia [Unknown]
  - Dizziness [Unknown]
  - Spinal disorder [Unknown]
  - Musculoskeletal stiffness [Unknown]
  - Amnesia [Unknown]
  - Abdominal tenderness [Unknown]
